FAERS Safety Report 20151918 (Version 1)
Quarter: 2021Q4

REPORT INFORMATION
  Report Type: Spontaneous
  Country: US (occurrence: US)
  Receive Date: 20211206
  Receipt Date: 20211206
  Transmission Date: 20220303
  Serious: Yes (Hospitalization, Other)
  Sender: FDA-Public Use
  Company Number: US-GILEAD-2021-0559023

PATIENT
  Sex: Female

DRUGS (1)
  1. VEKLURY [Suspect]
     Active Substance: REMDESIVIR
     Indication: COVID-19
     Dosage: UNK
     Route: 065

REACTIONS (6)
  - Pneumonia [Unknown]
  - Thrombosis [Unknown]
  - Cystitis [Unknown]
  - Blood pressure decreased [Unknown]
  - Illness [Not Recovered/Not Resolved]
  - Dyspnoea [Not Recovered/Not Resolved]
